FAERS Safety Report 19507585 (Version 1)
Quarter: 2021Q3

REPORT INFORMATION
  Report Type: Spontaneous
  Country: US (occurrence: US)
  Receive Date: 20210708
  Receipt Date: 20210708
  Transmission Date: 20211014
  Serious: No
  Sender: FDA-Public Use
  Company Number: US-PFIZER INC-2021670574

PATIENT
  Age: 51 Year
  Sex: Female

DRUGS (5)
  1. BIOTIN [Concomitant]
     Active Substance: BIOTIN
  2. UBRELVY [Concomitant]
     Active Substance: UBROGEPANT
     Dosage: 100 MG
  3. XELJANZ XR [Suspect]
     Active Substance: TOFACITINIB CITRATE
     Indication: RHEUMATOID ARTHRITIS
     Dosage: 11 MG, DAILY
     Route: 048
     Dates: start: 20210308
  4. VITAMIN D3 [Concomitant]
     Active Substance: CHOLECALCIFEROL
     Dosage: UNK (10 (400)/ML DROPS)
  5. B12 ACTIVE [Concomitant]
     Dosage: 1000 UG

REACTIONS (3)
  - Oral herpes [Unknown]
  - Fungal infection [Unknown]
  - Eyelid disorder [Unknown]
